FAERS Safety Report 5471595-4 (Version None)
Quarter: 2007Q3

REPORT INFORMATION
  Report Type: 
  Country: None (occurrence: None)
  Receive Date: 20070928
  Receipt Date: 20070130
  Transmission Date: 20080115
  Serious: No
  Sender: FDA-Public Use
  Company Number: US-BRISTOL-MYERS SQUIBB COMPANY-13662788

PATIENT
  Age: 59 Year
  Sex: Female

DRUGS (4)
  1. DEFINITY [Suspect]
     Indication: STRESS ECHOCARDIOGRAM
     Dates: start: 20070130
  2. ENULOSE [Concomitant]
  3. LANTUS [Concomitant]
  4. SINEMET [Concomitant]

REACTIONS (1)
  - BACK PAIN [None]
